FAERS Safety Report 13207072 (Version 1)
Quarter: 2017Q1

REPORT INFORMATION
  Report Type: Spontaneous
  Country: US (occurrence: US)
  Receive Date: 20170209
  Receipt Date: 20170209
  Transmission Date: 20170428
  Serious: Yes (Death)
  Sender: FDA-Public Use
  Company Number: None

PATIENT
  Age: 53 Year
  Sex: Male
  Weight: 145 kg

DRUGS (30)
  1. CHLORHEXIDINE [Concomitant]
     Active Substance: CHLORHEXIDINE
  2. FENTANYL. [Concomitant]
     Active Substance: FENTANYL
  3. MESNA. [Concomitant]
     Active Substance: MESNA
  4. MYCOPHENOLATE [Concomitant]
     Active Substance: MYCOPHENOLIC ACID
  5. FLUCONAZOLE. [Concomitant]
     Active Substance: FLUCONAZOLE
  6. FOLIC ACID. [Concomitant]
     Active Substance: FOLIC ACID
  7. MULTIVITAMIN [Concomitant]
     Active Substance: VITAMINS
  8. PROCHLORPERAZINE. [Concomitant]
     Active Substance: PROCHLORPERAZINE
  9. MECHANICAL VENTILATION [Concomitant]
  10. LORAZEPAM. [Concomitant]
     Active Substance: LORAZEPAM
  11. URSODIOL. [Concomitant]
     Active Substance: URSODIOL
  12. VANCOMYCIN [Concomitant]
     Active Substance: VANCOMYCIN
  13. VITAMIN K [Concomitant]
     Active Substance: PHYTONADIONE
  14. LANSOPRAZOLE. [Concomitant]
     Active Substance: LANSOPRAZOLE
  15. MEROPENEM. [Concomitant]
     Active Substance: MEROPENEM
  16. PHENYLEPHRINE [Concomitant]
     Active Substance: PHENYLEPHRINE\PHENYLEPHRINE HYDROCHLORIDE
  17. CYCLOPHOSPHAMIDE. [Suspect]
     Active Substance: CYCLOPHOSPHAMIDE
     Indication: ANAPLASTIC LARGE-CELL LYMPHOMA
     Dosage: 2085 MG INTRAVENOUS 2 DOSES DAY+3 + +5?
     Route: 042
     Dates: start: 20170202, end: 20170204
  18. AMIODARONE [Concomitant]
     Active Substance: AMIODARONE
  19. DEXTROSE. [Concomitant]
     Active Substance: DEXTROSE
  20. LIDOCAINE. [Concomitant]
     Active Substance: LIDOCAINE
  21. METRONIDAZOLE. [Concomitant]
     Active Substance: METRONIDAZOLE
  22. HEPARIN [Concomitant]
     Active Substance: HEPARIN SODIUM
  23. ALUMINUM HYDROXIDE. [Concomitant]
     Active Substance: ALUMINUM HYDROXIDE
  24. NOREPINEPHRINE [Concomitant]
     Active Substance: NOREPINEPHRINE\NOREPINEPHRINE BITARTRATE
  25. ONDANSETRON [Concomitant]
     Active Substance: ONDANSETRON
  26. PROPOFOL. [Concomitant]
     Active Substance: PROPOFOL
  27. SODIUM BICARBONATE. [Concomitant]
     Active Substance: SODIUM BICARBONATE
  28. VASOPRESSIN. [Concomitant]
     Active Substance: VASOPRESSIN
  29. ALTEPLASE [Concomitant]
     Active Substance: ALTEPLASE
  30. CALCIUM CARBONATE. [Concomitant]
     Active Substance: CALCIUM CARBONATE

REACTIONS (6)
  - Pulseless electrical activity [None]
  - Pneumonia aspiration [None]
  - Cardiac arrest [None]
  - Myoclonus [None]
  - Metabolic acidosis [None]
  - Acute kidney injury [None]

NARRATIVE: CASE EVENT DATE: 20170207
